FAERS Safety Report 24423287 (Version 3)
Quarter: 2024Q4

REPORT INFORMATION
  Report Type: Spontaneous
  Country: JP (occurrence: JP)
  Receive Date: 20241010
  Receipt Date: 20241219
  Transmission Date: 20250115
  Serious: Yes (Death)
  Sender: ELI LILLY AND COMPANY
  Company Number: JP-ELI_LILLY_AND_COMPANY-JP202410005837

PATIENT
  Age: 82 Year
  Sex: Male
  Weight: 66 kg

DRUGS (16)
  1. TRULICITY [Suspect]
     Active Substance: DULAGLUTIDE
     Indication: Type 2 diabetes mellitus
     Dosage: 0.75 MG, WEEKLY (1/W)
     Route: 058
     Dates: start: 20240613, end: 20240622
  2. FIASP [Concomitant]
     Active Substance: INSULIN ASPART
  3. PRASUGREL HYDROCHLORIDE [Concomitant]
     Active Substance: PRASUGREL HYDROCHLORIDE
  4. VONOPRAZAN FUMARATE [Concomitant]
     Active Substance: VONOPRAZAN FUMARATE
  5. ENTRESTO [Concomitant]
     Active Substance: SACUBITRIL\VALSARTAN
  6. FUROSEMIDE [Concomitant]
     Active Substance: FUROSEMIDE
  7. BISOPROLOL [Concomitant]
     Active Substance: BISOPROLOL
  8. AMLODIPINE [Concomitant]
     Active Substance: AMLODIPINE BESYLATE
  9. LEVOTHYROXINE [Concomitant]
     Active Substance: LEVOTHYROXINE
  10. FEBUXOSTAT [Concomitant]
     Active Substance: FEBUXOSTAT
  11. ASPIRIN [Concomitant]
     Active Substance: ASPIRIN
  12. PEMAFIBRATE [Concomitant]
     Active Substance: PEMAFIBRATE
  13. SODIUM BICARBONATE [Concomitant]
     Active Substance: SODIUM BICARBONATE
  14. KAYEXALATE [Concomitant]
     Active Substance: SODIUM POLYSTYRENE SULFONATE
  15. KREMEZIN [Concomitant]
     Active Substance: ACTIVATED CHARCOAL
  16. DAPAGLIFLOZIN [Concomitant]
     Active Substance: DAPAGLIFLOZIN

REACTIONS (6)
  - Ileus [Fatal]
  - Gastrointestinal necrosis [Fatal]
  - Dyspnoea [Fatal]
  - Urine output decreased [Fatal]
  - Disseminated intravascular coagulation [Fatal]
  - Labile blood pressure [Fatal]

NARRATIVE: CASE EVENT DATE: 20240618
